FAERS Safety Report 12725763 (Version 2)
Quarter: 2016Q3

REPORT INFORMATION
  Report Type: Spontaneous
  Country: NZ (occurrence: NZ)
  Receive Date: 20160908
  Receipt Date: 20160928
  Transmission Date: 20161109
  Serious: Yes (Other)
  Sender: FDA-Public Use
  Company Number: NZ-APOTEX-2016AP011337

PATIENT
  Age: 75 Year
  Sex: Male

DRUGS (1)
  1. APO-IMIQUIMOD [Suspect]
     Active Substance: IMIQUIMOD
     Indication: BASAL CELL CARCINOMA
     Dosage: CREAM APPLIED AT NIGHT 5 DAYS ON (MON- FRI) 2 DAYS OFF (SAT-SUN)
     Route: 061
     Dates: start: 20160728, end: 20160904

REACTIONS (7)
  - Depression [Recovering/Resolving]
  - Fatigue [Recovering/Resolving]
  - Asthenia [Recovering/Resolving]
  - Arthralgia [Recovering/Resolving]
  - Melaena [Recovering/Resolving]
  - Dizziness [Recovering/Resolving]
  - Product substitution issue [Recovering/Resolving]

NARRATIVE: CASE EVENT DATE: 20160728
